FAERS Safety Report 17788475 (Version 1)
Quarter: 2020Q2

REPORT INFORMATION
  Report Type: Report from Study
  Country: NL (occurrence: SD)
  Receive Date: 20200515
  Receipt Date: 20200515
  Transmission Date: 20200714
  Serious: Yes (Other)
  Sender: FDA-Public Use
  Company Number: NL-SUN PHARMACEUTICAL INDUSTRIES LTD-2020R1-246360

PATIENT

DRUGS (2)
  1. PAROMOMYCIN [Suspect]
     Active Substance: PAROMOMYCIN
     Indication: VISCERAL LEISHMANIASIS
     Dosage: UNK
     Route: 064
  2. SODIUMSTIBOGLUCONATE [Suspect]
     Active Substance: SODIUM STIBOGLUCONATE ANHYDROUS
     Route: 065

REACTIONS (2)
  - Premature baby [Unknown]
  - Foetal exposure during pregnancy [Unknown]
